FAERS Safety Report 7457932-X (Version None)
Quarter: 2011Q2

REPORT INFORMATION
  Report Type: 
  Country: None (occurrence: None)
  Receive Date: 20110504
  Receipt Date: 20110429
  Transmission Date: 20111010
  Serious: Yes (Other)
  Sender: FDA-Public Use
  Company Number: BG-PFIZER INC-2011092393

PATIENT
  Age: 45 Year
  Sex: Male

DRUGS (5)
  1. VIAGRA [Suspect]
     Indication: ERECTILE DYSFUNCTION
     Dosage: 100 MG, UNK
     Route: 048
  2. ASPIRIN [Concomitant]
     Dosage: UNK
     Dates: start: 20090101
  3. PLAVIX [Concomitant]
     Dosage: UNK
     Dates: start: 20100101
  4. CONCOR [Concomitant]
     Dosage: UNK
     Route: 048
     Dates: start: 20090101
  5. PREDUCTAL [Concomitant]
     Dosage: UNK
     Route: 048
     Dates: start: 20100101

REACTIONS (1)
  - HAEMOPTYSIS [None]
